FAERS Safety Report 7099539-2 (Version None)
Quarter: 2010Q4

REPORT INFORMATION
  Report Type: 
  Country: None (occurrence: None)
  Receive Date: 20101104
  Receipt Date: 20101008
  Transmission Date: 20110411
  Serious: Yes (Other)
  Sender: FDA-Public Use
  Company Number: 2010IP000128

PATIENT
  Age: 68 Year
  Sex: Male

DRUGS (5)
  1. VITRASE [Suspect]
     Indication: CATARACT OPERATION
     Dosage: 1X; RETRO
     Route: 056
     Dates: start: 20090831, end: 20090831
  2. LIDOCAINE HYDROCHLORIDE IN PLASTIC CONTAINER [Suspect]
     Indication: CATARACT OPERATION
     Dosage: 1X; RETRO
     Route: 056
     Dates: start: 20090831, end: 20090831
  3. BUPIVACAINE HCL [Suspect]
     Dosage: 1X; RETRO
     Route: 056
     Dates: start: 20090831, end: 20090831
  4. DIOVAN [Concomitant]
  5. LEXAPRO [Concomitant]

REACTIONS (4)
  - DIPLOPIA [None]
  - DRUG TOXICITY [None]
  - POST PROCEDURAL COMPLICATION [None]
  - STRABISMUS [None]
